FAERS Safety Report 4603166-3 (Version None)
Quarter: 2005Q1

REPORT INFORMATION
  Report Type: 
  Country: None (occurrence: None)
  Receive Date: 20050307
  Receipt Date: 20050221
  Transmission Date: 20050727
  Serious: Yes (Life-Threatening, Hospitalization)
  Sender: FDA-Public Use
  Company Number: 05H-028-0289897

PATIENT
  Age: 32 Year
  Sex: Male

DRUGS (7)
  1. STERILE WATER FOR INJECTION, PRES.-FREE FT VIAL [Suspect]
     Indication: MEDICATION DILUTION
     Dosage: SUBCUTANEOUS
     Route: 058
     Dates: start: 20040823, end: 20050110
  2. PEGETRON [Suspect]
     Indication: HEPATITIS C
     Dosage: EVERY WEEK, SUBCUTANEOUS
     Route: 058
     Dates: start: 20040823, end: 20050110
  3. RIBAVIRIN [Suspect]
     Indication: HEPATITIS C
     Dosage: DAILY, ORAL
     Route: 048
     Dates: start: 20040823, end: 20050110
  4. NARATRIPTAN HYDROCHLORIDE [Concomitant]
  5. TRAZADONE [Concomitant]
  6. TOPIRAMATE [Concomitant]
  7. TESTOSTERONE [Concomitant]

REACTIONS (15)
  - ATELECTASIS [None]
  - CONFUSIONAL STATE [None]
  - DIARRHOEA [None]
  - DISSEMINATED INTRAVASCULAR COAGULATION [None]
  - EMBOLIC STROKE [None]
  - ENDOCARDITIS [None]
  - JOINT EFFUSION [None]
  - NAUSEA [None]
  - PETECHIAE [None]
  - RENAL FAILURE ACUTE [None]
  - SKIN INFECTION [None]
  - SKIN LESION [None]
  - STAPHYLOCOCCAL SEPSIS [None]
  - SUBARACHNOID HAEMORRHAGE [None]
  - VOMITING [None]
